FAERS Safety Report 6131122-5 (Version None)
Quarter: 2009Q1

REPORT INFORMATION
  Report Type: 
  Country: None (occurrence: None)
  Receive Date: 20090325
  Receipt Date: 20090319
  Transmission Date: 20090719
  Serious: Yes (Death)
  Sender: FDA-Public Use
  Company Number: US-AMGEN-KDL339511

PATIENT
  Sex: Female

DRUGS (5)
  1. PROCRIT [Suspect]
     Indication: DRUG USE FOR UNKNOWN INDICATION
     Route: 058
  2. HYDRALAZINE HCL [Concomitant]
     Route: 048
  3. LASIX [Concomitant]
     Route: 048
  4. IMDUR [Concomitant]
  5. LEVOTHYROXINE [Concomitant]
     Route: 048

REACTIONS (1)
  - DEATH [None]
